FAERS Safety Report 9021185 (Version 1)
Quarter: 2013Q1

REPORT INFORMATION
  Report Type: Spontaneous
  Country: US (occurrence: US)
  Receive Date: 20130119
  Receipt Date: 20130119
  Transmission Date: 20140127
  Serious: No
  Sender: FDA-Public Use
  Company Number: US-ALLERGAN-1203524US

PATIENT
  Age: 39 Year
  Sex: Female

DRUGS (2)
  1. BOTOX COSMETIC [Suspect]
     Indication: SKIN WRINKLING
     Dosage: 25 UNITS, SINGLE
     Route: 030
     Dates: start: 20111206, end: 20111206
  2. ORTHOTRYCYCLEN [Concomitant]
     Indication: CONTRACEPTION
     Dosage: UNK
     Route: 048

REACTIONS (3)
  - Swelling face [Recovered/Resolved]
  - Skin tightness [Recovering/Resolving]
  - Skin wrinkling [Unknown]
